FAERS Safety Report 5050145-0 (Version None)
Quarter: 2006Q3

REPORT INFORMATION
  Report Type: 
  Country: None (occurrence: None)
  Receive Date: 20060706
  Receipt Date: 20060626
  Transmission Date: 20061208
  Serious: Yes (Other)
  Sender: FDA-Public Use
  Company Number: 2006080668

PATIENT
  Sex: Female

DRUGS (1)
  1. ZOLOFT [Suspect]
     Dates: start: 19980101

REACTIONS (6)
  - CHILLS [None]
  - DIZZINESS [None]
  - DRUG EFFECT DECREASED [None]
  - FEELING ABNORMAL [None]
  - HEADACHE [None]
  - NERVOUS SYSTEM DISORDER [None]
